FAERS Safety Report 9652012 (Version 1)
Quarter: 2013Q4

REPORT INFORMATION
  Report Type: Spontaneous
  Country: DE (occurrence: None)
  Receive Date: 20131025
  Receipt Date: 20131025
  Transmission Date: 20140711
  Serious: Yes (Life-Threatening)
  Sender: FDA-Public Use
  Company Number: SYM-2013-12021

PATIENT
  Age: 50 Year
  Sex: Female

DRUGS (3)
  1. NITOMAN [Suspect]
     Indication: TARDIVE DYSKINESIA
     Route: 048
  2. PRIMIDON (PRIMIDONE) (PRIMIDONE) [Concomitant]
  3. SEROQUEL (QUETIAPINE) (QUETIAPINE) [Concomitant]

REACTIONS (2)
  - Cardiac arrest [None]
  - Aspiration [None]
